FAERS Safety Report 5848456-1 (Version None)
Quarter: 2008Q3

REPORT INFORMATION
  Report Type: 
  Country: None (occurrence: None)
  Receive Date: 20080815
  Receipt Date: 20080815
  Transmission Date: 20090109
  Serious: Yes (Life-Threatening)
  Sender: FDA-Public Use
  Company Number: None

PATIENT
  Age: 15 Year
  Sex: Male
  Weight: 63.5036 kg

DRUGS (1)
  1. BENADRYL [Suspect]
     Indication: HYPERSENSITIVITY
     Dosage: 1 TABLET MORNING PO I TABLET BEDTIME
     Route: 048
     Dates: start: 20080424, end: 20080424

REACTIONS (3)
  - DYSPNOEA [None]
  - TACHYCARDIA [None]
  - TREMOR [None]
